FAERS Safety Report 19051667 (Version 1)
Quarter: 2021Q1

REPORT INFORMATION
  Report Type: Report from Study
  Country: FR (occurrence: FR)
  Receive Date: 20210324
  Receipt Date: 20210324
  Transmission Date: 20210420
  Serious: Yes (Hospitalization)
  Sender: FDA-Public Use
  Company Number: FR-TAKEDA-FR201814827

PATIENT
  Age: 65 Year
  Sex: Female
  Weight: 40 kg

DRUGS (25)
  1. TEDUGLUTIDE [Suspect]
     Active Substance: TEDUGLUTIDE
     Indication: SHORT-BOWEL SYNDROME
     Dosage: 0.05 MG/KG, 4X/DAY:QID
     Route: 065
     Dates: start: 20160322, end: 20160920
  2. TEDUGLUTIDE [Suspect]
     Active Substance: TEDUGLUTIDE
     Dosage: 0.05 MG/KG, UNK
     Route: 065
     Dates: start: 20171130, end: 20171209
  3. CERNEVIT [Concomitant]
     Active Substance: VITAMINS
     Indication: SUPPLEMENTATION THERAPY
  4. MAGNESIUM CITRATE. [Concomitant]
     Active Substance: MAGNESIUM CITRATE
     Indication: SUPPLEMENTATION THERAPY
  5. TEDUGLUTIDE [Suspect]
     Active Substance: TEDUGLUTIDE
     Dosage: 0.05 MG/KG, UNK
     Route: 065
     Dates: start: 20171130, end: 20171209
  6. TEDUGLUTIDE [Suspect]
     Active Substance: TEDUGLUTIDE
     Dosage: 0.05 MG/KG, UNK
     Route: 065
     Dates: start: 20171209, end: 20180103
  7. TEDUGLUTIDE [Suspect]
     Active Substance: TEDUGLUTIDE
     Dosage: 0.05 MG/KG, UNK
     Route: 065
     Dates: start: 20171209, end: 20180103
  8. TEDUGLUTIDE [Suspect]
     Active Substance: TEDUGLUTIDE
     Indication: SHORT-BOWEL SYNDROME
     Dosage: 0.05 MG/KG, 4X/DAY:QID
     Route: 065
     Dates: start: 20160322, end: 20160920
  9. NICOPATCH [Concomitant]
     Active Substance: NICOTINE
     Indication: TOBACCO USER
  10. TEDUGLUTIDE [Suspect]
     Active Substance: TEDUGLUTIDE
     Indication: SHORT-BOWEL SYNDROME
     Dosage: 0.05 MG/KG, 4X/DAY:QID
     Route: 065
     Dates: start: 20160322, end: 20160920
  11. TEDUGLUTIDE [Suspect]
     Active Substance: TEDUGLUTIDE
     Dosage: 0.05 MG/KG, UNK
     Route: 065
     Dates: start: 20180103
  12. TEDUGLUTIDE [Suspect]
     Active Substance: TEDUGLUTIDE
     Dosage: 0.05 MG/KG, UNK
     Route: 065
     Dates: start: 20180103
  13. TEDUGLUTIDE [Suspect]
     Active Substance: TEDUGLUTIDE
     Dosage: 0.05 MG/KG, UNK
     Route: 065
     Dates: start: 20180103
  14. TEDUGLUTIDE [Suspect]
     Active Substance: TEDUGLUTIDE
     Indication: SHORT-BOWEL SYNDROME
     Dosage: 0.05 MG/KG, 4X/DAY:QID
     Route: 065
     Dates: start: 20160322, end: 20160920
  15. TEDUGLUTIDE [Suspect]
     Active Substance: TEDUGLUTIDE
     Dosage: 0.05 MG/KG, 3X/DAY:TID
     Route: 065
     Dates: start: 20160920, end: 20171130
  16. TEDUGLUTIDE [Suspect]
     Active Substance: TEDUGLUTIDE
     Dosage: 0.05 MG/KG, 3X/DAY:TID
     Route: 065
     Dates: start: 20160920, end: 20171130
  17. TEDUGLUTIDE [Suspect]
     Active Substance: TEDUGLUTIDE
     Dosage: 0.05 MG/KG, UNK
     Route: 065
     Dates: start: 20180103
  18. COUMADINE [Concomitant]
     Active Substance: WARFARIN SODIUM
     Indication: PROPHYLAXIS
  19. TEDUGLUTIDE [Suspect]
     Active Substance: TEDUGLUTIDE
     Dosage: 0.05 MG/KG, 3X/DAY:TID
     Route: 065
     Dates: start: 20160920, end: 20171130
  20. TEDUGLUTIDE [Suspect]
     Active Substance: TEDUGLUTIDE
     Dosage: 0.05 MG/KG, 3X/DAY:TID
     Route: 065
     Dates: start: 20160920, end: 20171130
  21. TEDUGLUTIDE [Suspect]
     Active Substance: TEDUGLUTIDE
     Dosage: 0.05 MG/KG, UNK
     Route: 065
     Dates: start: 20171130, end: 20171209
  22. TEDUGLUTIDE [Suspect]
     Active Substance: TEDUGLUTIDE
     Dosage: 0.05 MG/KG, UNK
     Route: 065
     Dates: start: 20171130, end: 20171209
  23. TEDUGLUTIDE [Suspect]
     Active Substance: TEDUGLUTIDE
     Dosage: 0.05 MG/KG, UNK
     Route: 065
     Dates: start: 20171209, end: 20180103
  24. TEDUGLUTIDE [Suspect]
     Active Substance: TEDUGLUTIDE
     Dosage: 0.05 MG/KG, UNK
     Route: 065
     Dates: start: 20171209, end: 20180103
  25. ACLASTA [Concomitant]
     Active Substance: ZOLEDRONIC ACID
     Indication: OSTEOPOROSIS PROPHYLAXIS

REACTIONS (2)
  - Gastritis [Not Recovered/Not Resolved]
  - Endoscopy upper gastrointestinal tract [Recovered/Resolved]

NARRATIVE: CASE EVENT DATE: 20180326
